FAERS Safety Report 4559302-0 (Version None)
Quarter: 2005Q1

REPORT INFORMATION
  Report Type: 
  Country: None (occurrence: None)
  Receive Date: 20050124
  Receipt Date: 20050113
  Transmission Date: 20050727
  Serious: Yes (Other)
  Sender: FDA-Public Use
  Company Number: US-JNJFOC-20050103678

PATIENT
  Sex: Male

DRUGS (1)
  1. DURAGESIC [Suspect]
     Route: 062

REACTIONS (10)
  - APPLICATION SITE DERMATITIS [None]
  - APPLICATION SITE DISCOMFORT [None]
  - APPLICATION SITE ERYTHEMA [None]
  - APPLICATION SITE PAIN [None]
  - FACE INJURY [None]
  - FALL [None]
  - HYPERHIDROSIS [None]
  - INCOHERENT [None]
  - INTENTIONAL MISUSE [None]
  - MEDICATION ERROR [None]
